FAERS Safety Report 10686467 (Version 1)
Quarter: 2015Q1

REPORT INFORMATION
  Report Type: Spontaneous
  Country: US (occurrence: US)
  Receive Date: 20150101
  Receipt Date: 20150101
  Transmission Date: 20150720
  Serious: No
  Sender: FDA-Public Use
  Company Number: US-ASTRAZENECA-2014SE91002

PATIENT
  Age: 69 Year
  Sex: Female

DRUGS (1)
  1. LISINOPRIL. [Suspect]
     Active Substance: LISINOPRIL
     Route: 048

REACTIONS (6)
  - Cough [Unknown]
  - Headache [Unknown]
  - Dry mouth [Unknown]
  - Blood pressure inadequately controlled [Unknown]
  - Blood pressure [Unknown]
  - Dizziness [Unknown]
